FAERS Safety Report 6102357-2 (Version None)
Quarter: 2009Q1

REPORT INFORMATION
  Report Type: 
  Country: None (occurrence: None)
  Receive Date: 20090304
  Receipt Date: 20080618
  Transmission Date: 20090719
  Serious: No
  Sender: FDA-Public Use
  Company Number: US-ABBOTT-08P-163-0458753-00

PATIENT
  Age: 24 Year
  Sex: Male

DRUGS (2)
  1. DEPAKENE [Suspect]
     Indication: MOOD SWINGS
     Route: 048
     Dates: start: 20080613
  2. DEPAKENE [Suspect]
     Indication: BIPOLAR DISORDER

REACTIONS (4)
  - DIARRHOEA [None]
  - DIZZINESS [None]
  - HEADACHE [None]
  - NAUSEA [None]
